FAERS Safety Report 10631625 (Version 1)
Quarter: 2014Q4

REPORT INFORMATION
  Report Type: Spontaneous
  Country: US (occurrence: None)
  Receive Date: 20141203
  Receipt Date: 20141203
  Transmission Date: 20150529
  Serious: Yes (Hospitalization, Disabling)
  Sender: FDA-Public Use
  Company Number: None

PATIENT
  Age: 44 Year
  Sex: Male
  Weight: 111.13 kg

DRUGS (2)
  1. VENLAFAXINE HCL [Suspect]
     Active Substance: VENLAFAXINE HYDROCHLORIDE
     Indication: DEPRESSION
     Route: 048
     Dates: start: 20131201, end: 20141130
  2. VENLAFAXINE HCL [Suspect]
     Active Substance: VENLAFAXINE HYDROCHLORIDE
     Indication: ANXIETY
     Route: 048
     Dates: start: 20131201, end: 20141130

REACTIONS (16)
  - Presyncope [None]
  - Impaired driving ability [None]
  - Seizure [None]
  - Hypertension [None]
  - Anxiety [None]
  - Dissociation [None]
  - Paraesthesia [None]
  - Eye movement disorder [None]
  - Vision blurred [None]
  - Inappropriate schedule of drug administration [None]
  - Impaired work ability [None]
  - Disturbance in attention [None]
  - Somnolence [None]
  - Affect lability [None]
  - Drug withdrawal syndrome [None]
  - Dizziness [None]

NARRATIVE: CASE EVENT DATE: 20141202
